FAERS Safety Report 9119057 (Version 1)
Quarter: 2013Q1

REPORT INFORMATION
  Report Type: Spontaneous
  Country: DK (occurrence: None)
  Receive Date: 20130130
  Receipt Date: 20130130
  Transmission Date: 20140127
  Serious: Yes (Disabling)
  Sender: FDA-Public Use
  Company Number: DK-SEPTODONT-200500648

PATIENT
  Age: 43 Year
  Sex: Female

DRUGS (1)
  1. SEPTANEST (ARTICAINE HCL 4% AND EPINEPHRINE) [Suspect]
     Indication: LOCAL ANAESTHESIA
     Dosage: 40 MG/ML + 5 UG/ML SOLUTION FOR INJECTION.
     Route: 004

REACTIONS (5)
  - Hyperaesthesia [None]
  - Paraesthesia [None]
  - Conversion disorder [None]
  - Hyperaesthesia [None]
  - Pain [None]
